FAERS Safety Report 10176392 (Version 1)
Quarter: 2014Q2

REPORT INFORMATION
  Report Type: Spontaneous
  Country: US (occurrence: None)
  Receive Date: 20140515
  Receipt Date: 20140515
  Transmission Date: 20141212
  Serious: No
  Sender: FDA-Public Use
  Company Number: None

PATIENT
  Age: 71 Year
  Sex: Female
  Weight: 69.4 kg

DRUGS (4)
  1. OMEPRAZOLE [Suspect]
     Indication: DYSPEPSIA
     Dosage: 40 MG, 90, 1 DAILY, BY MOUTH
     Route: 048
     Dates: start: 20140315, end: 20140322
  2. D3 [Concomitant]
  3. B COMPLEX [Concomitant]
  4. MECA RED OMEGA 3 KRILL OIL [Concomitant]

REACTIONS (5)
  - Pain [None]
  - Abdominal distension [None]
  - Flatulence [None]
  - Product quality issue [None]
  - Product substitution issue [None]
